FAERS Safety Report 17633161 (Version 2)
Quarter: 2020Q2

REPORT INFORMATION
  Report Type: Report from Study
  Country: None (occurrence: US)
  Receive Date: 20200406
  Receipt Date: 20200508
  Transmission Date: 20200713
  Serious: Yes (Hospitalization)
  Sender: FDA-Public Use
  Company Number: US-ABBVIE-20K-163-3274378-00

PATIENT
  Age: 35 Year
  Sex: Male

DRUGS (3)
  1. HUMIRA [Suspect]
     Active Substance: ADALIMUMAB
     Indication: CROHN^S DISEASE
     Dosage: DAY 01
     Route: 058
     Dates: start: 20200201, end: 20200201
  2. HUMIRA [Suspect]
     Active Substance: ADALIMUMAB
     Dosage: DAY 15
     Route: 058
     Dates: start: 20200215, end: 20200215
  3. HUMIRA [Suspect]
     Active Substance: ADALIMUMAB
     Indication: CROHN^S DISEASE
     Route: 058
     Dates: start: 20200229

REACTIONS (17)
  - Anxiety [Recovering/Resolving]
  - Decreased appetite [Recovering/Resolving]
  - Diarrhoea [Recovering/Resolving]
  - Insomnia [Recovering/Resolving]
  - Vomiting [Recovered/Resolved]
  - Haematochezia [Recovering/Resolving]
  - Abdominal pain upper [Recovering/Resolving]
  - Loss of personal independence in daily activities [Recovering/Resolving]
  - Pyrexia [Not Recovered/Not Resolved]
  - Fear [Recovering/Resolving]
  - Abnormal faeces [Recovering/Resolving]
  - Night sweats [Unknown]
  - Depressed mood [Recovering/Resolving]
  - Weight decreased [Recovering/Resolving]
  - Cough [Not Recovered/Not Resolved]
  - Rectal haemorrhage [Recovering/Resolving]
  - Nausea [Not Recovered/Not Resolved]

NARRATIVE: CASE EVENT DATE: 2020
